FAERS Safety Report 20807352 (Version 2)
Quarter: 2022Q2

REPORT INFORMATION
  Report Type: Spontaneous
  Country: DE (occurrence: DE)
  Receive Date: 20220510
  Receipt Date: 20220519
  Transmission Date: 20220721
  Serious: Yes (Other)
  Sender: FDA-Public Use
  Company Number: DE-SANOFI-01088419

PATIENT
  Age: 67 Year
  Sex: Male

DRUGS (2)
  1. CERDELGA [Suspect]
     Active Substance: ELIGLUSTAT
     Indication: Gaucher^s disease
     Dosage: 84 MG, BID
     Route: 065
  2. PIRIBEDIL [Suspect]
     Active Substance: PIRIBEDIL
     Dosage: UNK

REACTIONS (4)
  - Hallucination [Unknown]
  - Insomnia [Unknown]
  - Somnambulism [Unknown]
  - Sleep disorder [Unknown]
